FAERS Safety Report 4726023-0 (Version None)
Quarter: 2005Q3

REPORT INFORMATION
  Report Type: 
  Country: None (occurrence: None)
  Receive Date: 20050722
  Receipt Date: 20050722
  Transmission Date: 20060218
  Serious: Yes (Life-Threatening, Hospitalization)
  Sender: FDA-Public Use
  Company Number: None

PATIENT
  Age: 46 Year
  Sex: Female
  Weight: 53.0709 kg

DRUGS (2)
  1. ZOMIG [Suspect]
     Indication: MIGRAINE
     Dosage: 2.5 MG, PRN, ORAL AVERAGE 6-8 DOSES PER MONTH
     Route: 048
     Dates: start: 19980401, end: 20040511
  2. IBUPROFEN [Concomitant]

REACTIONS (1)
  - SUBARACHNOID HAEMORRHAGE [None]
